FAERS Safety Report 7444389-8 (Version None)
Quarter: 2011Q2

REPORT INFORMATION
  Report Type: 
  Country: None (occurrence: None)
  Receive Date: 20110419
  Receipt Date: 20110404
  Transmission Date: 20111010
  Serious: Yes (Disabling)
  Sender: FDA-Public Use
  Company Number: JP-2011-10540

PATIENT
  Age: 90 Year
  Sex: Male
  Weight: 57.9 kg

DRUGS (14)
  1. SAMSCA [Suspect]
     Indication: CARDIAC FAILURE
     Dosage: 7.5 MG MILLIGRAM(S), QD, ORAL;
     Route: 048
     Dates: start: 20110317, end: 20110320
  2. ALDACTONE [Concomitant]
  3. ASPIRIN [Concomitant]
  4. TANADOPA (DOCARPAMINE) [Concomitant]
  5. HOKUNALIN:TAPE (TULOBUTEROL) [Concomitant]
  6. TAKEPRON (LANSOPRAZOLE) [Concomitant]
  7. METHYCOBAL (MECOBALAMIN) [Concomitant]
  8. ISOSORBIDE MONONITRATE [Concomitant]
  9. LASIX [Concomitant]
  10. SIGMART (NICORANDIL) [Concomitant]
  11. UNIPHYL [Concomitant]
  12. SPIRIVA [Concomitant]
  13. LEVOTHYROXINE SODIUM [Concomitant]
  14. PREDNISOLONE [Concomitant]

REACTIONS (4)
  - WEIGHT DECREASED [None]
  - CEREBRAL ARTERY OCCLUSION [None]
  - CEREBRAL ARTERY EMBOLISM [None]
  - HEMIPLEGIA [None]
